FAERS Safety Report 10589713 (Version 3)
Quarter: 2015Q1

REPORT INFORMATION
  Report Type: Spontaneous
  Country: GB (occurrence: GB)
  Receive Date: 20141118
  Receipt Date: 20150211
  Transmission Date: 20150720
  Serious: Yes (Other)
  Sender: FDA-Public Use
  Company Number: GB-TEVA-522976ISR

PATIENT
  Sex: Female
  Weight: 84 kg

DRUGS (5)
  1. METFORMIN [Suspect]
     Active Substance: METFORMIN HYDROCHLORIDE
     Route: 065
     Dates: end: 201410
  2. BENDROFLUMETHIAZIDE [Suspect]
     Active Substance: BENDROFLUMETHIAZIDE
     Route: 065
     Dates: end: 201410
  3. ATENOLOL. [Suspect]
     Active Substance: ATENOLOL
     Route: 065
     Dates: end: 201410
  4. ASPIRIN. [Suspect]
     Active Substance: ASPIRIN
     Route: 065
     Dates: end: 201410
  5. PRAVASTATIN [Suspect]
     Active Substance: PRAVASTATIN\PRAVASTATIN SODIUM
     Dosage: TAKEN FOR 13 YEARS
     Route: 065
     Dates: end: 201410

REACTIONS (5)
  - Adverse event [Unknown]
  - Chronic lymphocytic leukaemia [Unknown]
  - Diabetes mellitus [Unknown]
  - Alopecia [Unknown]
  - Monoclonal B-cell lymphocytosis [Unknown]

NARRATIVE: CASE EVENT DATE: 2014
